FAERS Safety Report 6884766-7 (Version None)
Quarter: 2010Q3

REPORT INFORMATION
  Report Type: 
  Country: None (occurrence: None)
  Receive Date: 20100729
  Receipt Date: 20070820
  Transmission Date: 20110219
  Serious: No
  Sender: FDA-Public Use
  Company Number: US-PFIZER INC-2007069220

PATIENT
  Sex: Female

DRUGS (3)
  1. CELEBREX [Suspect]
  2. LYRICA [Suspect]
     Indication: NEURALGIA
  3. METHADONE HCL [Suspect]

REACTIONS (1)
  - FLUID RETENTION [None]
